FAERS Safety Report 23692677 (Version 1)
Quarter: 2024Q1

REPORT INFORMATION
  Report Type: Spontaneous
  Country: US (occurrence: None)
  Receive Date: 20240330
  Receipt Date: 20240330
  Transmission Date: 20240409
  Serious: Yes (Life-Threatening, Hospitalization, Disabling)
  Sender: FDA-Public Use
  Company Number: None

PATIENT
  Age: 80 Year
  Sex: Male
  Weight: 103.5 kg

DRUGS (5)
  1. METFORMIN [Suspect]
     Active Substance: METFORMIN HYDROCHLORIDE
     Indication: Glucose tolerance impaired
     Dosage: 500 MG DAILY ORAL
     Route: 048
     Dates: end: 20240122
  2. IMIPRAMINE [Suspect]
     Active Substance: IMIPRAMINE
     Indication: Enuresis
     Dosage: 25 MMG TWICE A DAY ORAL
     Route: 048
     Dates: start: 20200101, end: 20240215
  3. ROSUVASTATIN [Suspect]
     Active Substance: ROSUVASTATIN
  4. NITROFURANTOIN [Suspect]
     Active Substance: NITROFURANTOIN
  5. BACTRIM [Suspect]
     Active Substance: SULFAMETHOXAZOLE\TRIMETHOPRIM

REACTIONS (21)
  - Acute kidney injury [None]
  - Hepatic cirrhosis [None]
  - Cardiac failure congestive [None]
  - Ascites [None]
  - Atrioventricular block [None]
  - Atrial fibrillation [None]
  - Condition aggravated [None]
  - Off label use [None]
  - Urinary tract infection [None]
  - Atrial flutter [None]
  - Dyspnoea [None]
  - Back pain [None]
  - Liver function test increased [None]
  - Therapy interrupted [None]
  - Rash [None]
  - Hepatotoxicity [None]
  - Contusion [None]
  - Haemorrhage [None]
  - Anaemia [None]
  - Cellulitis [None]
  - Weight decreased [None]

NARRATIVE: CASE EVENT DATE: 20240205
